FAERS Safety Report 13733322 (Version 1)
Quarter: 2017Q3

REPORT INFORMATION
  Report Type: Spontaneous
  Country: US (occurrence: US)
  Receive Date: 20170707
  Receipt Date: 20170707
  Transmission Date: 20171127
  Serious: No
  Sender: FDA-Public Use
  Company Number: US-ROCHE-1369232

PATIENT
  Sex: Male

DRUGS (1)
  1. GAZYVA [Suspect]
     Active Substance: OBINUTUZUMAB
     Indication: CHRONIC LYMPHOCYTIC LEUKAEMIA
     Dosage: 25MG/HR FOR 4 HRS AND AT 17.5MG INTO INFUSION
     Route: 065

REACTIONS (3)
  - Urinary incontinence [Unknown]
  - Anal incontinence [Unknown]
  - White blood cell count increased [Unknown]
